FAERS Safety Report 5957404-5 (Version None)
Quarter: 2008Q4

REPORT INFORMATION
  Report Type: 
  Country: None (occurrence: None)
  Receive Date: 20081118
  Receipt Date: 20081107
  Transmission Date: 20090506
  Serious: Yes (Hospitalization)
  Sender: FDA-Public Use
  Company Number: ZA-MERCK-0811ZAF00023

PATIENT
  Sex: Male

DRUGS (9)
  1. INVANZ [Suspect]
     Indication: INFECTION
     Route: 041
     Dates: start: 20080521, end: 20080529
  2. PROGRAF [Concomitant]
     Route: 065
  3. CELLCEPT [Concomitant]
     Route: 065
  4. PREDNISONE [Concomitant]
     Route: 065
  5. ENALAPRIL MALEATE [Concomitant]
     Route: 065
  6. PURICOS [Concomitant]
     Route: 065
  7. COLCHICINE [Concomitant]
     Route: 065
  8. PANTOPRAZOLE SODIUM [Concomitant]
     Route: 065
  9. PLENDIL [Concomitant]
     Route: 065

REACTIONS (1)
  - DELIRIUM [None]
